FAERS Safety Report 4951779-1 (Version None)
Quarter: 2006Q1

REPORT INFORMATION
  Report Type: 
  Country: None (occurrence: None)
  Receive Date: 20060322
  Receipt Date: 20060322
  Transmission Date: 20060701
  Serious: Yes (Hospitalization)
  Sender: FDA-Public Use
  Company Number: None

PATIENT
  Age: 24 Year
  Sex: Female
  Weight: 77.1115 kg

DRUGS (2)
  1. PAXIL CR [Suspect]
     Indication: ANXIETY
     Dosage: 25 MG ONCE A DAY PO
     Route: 048
     Dates: start: 19970101, end: 20060321
  2. PAXIL CR [Suspect]
     Indication: DEPRESSION
     Dosage: 25 MG ONCE A DAY PO
     Route: 048
     Dates: start: 19970101, end: 20060321

REACTIONS (7)
  - DEPERSONALISATION [None]
  - DRUG DEPENDENCE [None]
  - DRUG WITHDRAWAL SYNDROME [None]
  - HALLUCINATION [None]
  - INSOMNIA [None]
  - NIGHTMARE [None]
  - SUICIDAL IDEATION [None]
